FAERS Safety Report 7158716-2 (Version None)
Quarter: 2010Q4

REPORT INFORMATION
  Report Type: 
  Country: None (occurrence: None)
  Receive Date: 20101129
  Receipt Date: 20101109
  Transmission Date: 20110411
  Serious: Yes (Disabling)
  Sender: FDA-Public Use
  Company Number: 2010P1002496

PATIENT
  Age: 61 Year
  Sex: Male
  Weight: 61.2356 kg

DRUGS (4)
  1. TOPICORT [Suspect]
     Indication: DERMATITIS
     Dosage: (BID)
     Route: 061
     Dates: start: 20101019, end: 20101025
  2. TOPICORT [Suspect]
     Indication: DERMATITIS
     Dosage: (BID)
     Route: 061
     Dates: start: 20101108
  3. NEUTROGENA ^ANTI-WRINKLE CREAM^ [Suspect]
     Route: 061
  4. OSTEO BI FLEX [Concomitant]

REACTIONS (5)
  - DEFORMITY [None]
  - DRUG EFFECT DECREASED [None]
  - HEADACHE [None]
  - OFF LABEL USE [None]
  - PRODUCT ODOUR ABNORMAL [None]
